FAERS Safety Report 10351658 (Version 2)
Quarter: 2014Q3

REPORT INFORMATION
  Report Type: Spontaneous
  Country: JP (occurrence: JP)
  Receive Date: 20140730
  Receipt Date: 20140915
  Transmission Date: 20150326
  Serious: Yes (Death)
  Sender: FDA-Public Use
  Company Number: PHHY2014JP093047

PATIENT
  Age: 95 Year
  Sex: Male

DRUGS (2)
  1. EXELON PATCH [Suspect]
     Active Substance: RIVASTIGMINE
     Indication: DEMENTIA ALZHEIMER^S TYPE
     Dosage: 9.5 MG/24 HOURS (18 MG)
     Route: 062
     Dates: start: 20121005, end: 20140512
  2. HALCION [Concomitant]
     Active Substance: TRIAZOLAM
     Dosage: 0.25 MG, UNK
     Route: 048
     Dates: start: 20121005, end: 20140512

REACTIONS (1)
  - Death [Fatal]

NARRATIVE: CASE EVENT DATE: 20140703
